FAERS Safety Report 6017511 (Version 6)
Quarter: 2015Q1

REPORT INFORMATION
  Report Type: Spontaneous
  Country: JP (occurrence: JP)
  Receive Date: 20060403
  Receipt Date: 20150127
  Transmission Date: 20150721
  Serious: Yes (Hospitalization)
  Sender: FDA-Public Use
  Company Number: PHBS2005JP15526

PATIENT
  Age: 61 Year
  Sex: Male

DRUGS (2)
  1. GLIVEC [Suspect]
     Active Substance: IMATINIB MESYLATE
     Dosage: 300 MG, QD
     Route: 048
  2. GLIVEC [Suspect]
     Active Substance: IMATINIB MESYLATE
     Indication: CHRONIC MYELOID LEUKAEMIA
     Dosage: 400 MG, QD
     Route: 048
     Dates: start: 200410, end: 200510

REACTIONS (21)
  - Blast crisis in myelogenous leukaemia [Unknown]
  - Viral infection [Recovered/Resolved]
  - Staphylococcal infection [Recovered/Resolved]
  - Tinnitus [Unknown]
  - Leukaemia recurrent [Unknown]
  - Eating disorder [Recovering/Resolving]
  - Malignant neoplasm progression [Unknown]
  - Acute lymphocytic leukaemia [Unknown]
  - Central nervous system leukaemia [Unknown]
  - Dizziness [Recovering/Resolving]
  - Diarrhoea [Unknown]
  - Hydrocephalus [Recovering/Resolving]
  - Visual impairment [Unknown]
  - Brain oedema [Recovering/Resolving]
  - Papilloedema [Unknown]
  - Nausea [Unknown]
  - Headache [Unknown]
  - Pyrexia [Unknown]
  - Upper respiratory tract inflammation [Unknown]
  - Vomiting [Unknown]
  - Cerebral ventricle dilatation [Unknown]

NARRATIVE: CASE EVENT DATE: 200509
